FAERS Safety Report 25820919 (Version 2)
Quarter: 2025Q4

REPORT INFORMATION
  Report Type: Report from Study
  Country: US (occurrence: US)
  Receive Date: 20250919
  Receipt Date: 20251005
  Transmission Date: 20260118
  Serious: Yes (Other)
  Sender: ABBVIE
  Company Number: US-ABBVIE-6466481

PATIENT
  Age: 41 Year
  Sex: Female
  Weight: 79 kg

DRUGS (1)
  1. SKYRIZI [Suspect]
     Active Substance: RISANKIZUMAB-RZAA
     Indication: Crohn^s disease
     Dosage: TIME INTERVAL: TOTAL
     Route: 042
     Dates: start: 20250818, end: 20250818

REACTIONS (7)
  - Breast abscess [Recovering/Resolving]
  - Breast inflammation [Recovering/Resolving]
  - Breast pain [Recovering/Resolving]
  - Mastitis [Recovering/Resolving]
  - Breast cellulitis [Recovering/Resolving]
  - Breast injury [Recovering/Resolving]
  - Immunodeficiency [Unknown]

NARRATIVE: CASE EVENT DATE: 20250101
